FAERS Safety Report 7050517-9 (Version None)
Quarter: 2010Q4

REPORT INFORMATION
  Report Type: 
  Country: None (occurrence: None)
  Receive Date: 20101018
  Receipt Date: 20101008
  Transmission Date: 20110411
  Serious: Yes (Hospitalization)
  Sender: FDA-Public Use
  Company Number: DE-ASTRAZENECA-2010SE46144

PATIENT
  Age: 697 Month
  Sex: Female
  Weight: 61 kg

DRUGS (3)
  1. ATACAND HCT [Suspect]
     Indication: HYPERTENSION
     Dosage: 16/12.5 MG 1 TABLET IN THE MORNING
     Route: 048
     Dates: start: 20040101
  2. SIMVABETA [Concomitant]
     Indication: HYPERLIPIDAEMIA
     Route: 048
     Dates: start: 20060101
  3. URSO 250 HEUMANN [Concomitant]
     Route: 048
     Dates: start: 20090101

REACTIONS (1)
  - BILIARY TRACT DISORDER [None]
